FAERS Safety Report 18857445 (Version 1)
Quarter: 2021Q1

REPORT INFORMATION
  Report Type: Spontaneous
  Country: US (occurrence: US)
  Receive Date: 20210208
  Receipt Date: 20210208
  Transmission Date: 20210420
  Serious: No
  Sender: FDA-Public Use
  Company Number: US-NANG KUANG PHARMACEUTICAL CO., LTD.-2106449

PATIENT

DRUGS (1)
  1. LINEZOLID INJECTION, 200 MG/100 ML (2 MG/ML) AND 600 MG/300 ML (2 MG/M [Suspect]
     Active Substance: LINEZOLID

REACTIONS (1)
  - No adverse event [None]
